FAERS Safety Report 10721390 (Version 1)
Quarter: 2015Q1

REPORT INFORMATION
  Report Type: Report from Study
  Country: AU (occurrence: AU)
  Receive Date: 20150119
  Receipt Date: 20150119
  Transmission Date: 20150721
  Serious: Yes (Death, Other)
  Sender: FDA-Public Use
  Company Number: PHHY2014AU162998

PATIENT
  Sex: Female

DRUGS (1)
  1. SANDOSTATIN LAR DEPOT [Suspect]
     Active Substance: OCTREOTIDE ACETATE
     Indication: CARCINOID SYNDROME
     Dosage: 30 MG, UNK
     Route: 030
     Dates: start: 20140804, end: 20141124

REACTIONS (5)
  - Intestinal obstruction [Unknown]
  - Malignant neoplasm progression [Fatal]
  - Vomiting [Unknown]
  - Abdominal pain [Unknown]
  - Terminal state [Unknown]
